FAERS Safety Report 16813423 (Version 1)
Quarter: 2019Q3

REPORT INFORMATION
  Report Type: Spontaneous
  Country: FR (occurrence: FR)
  Receive Date: 20190917
  Receipt Date: 20190917
  Transmission Date: 20191005
  Serious: Yes (Hospitalization, Other)
  Sender: FDA-Public Use
  Company Number: FR-US-PROVELL PHARMACEUTICALS LLC-E2B_90069878

PATIENT
  Sex: Female

DRUGS (5)
  1. LERCANIDIPINE [Concomitant]
     Active Substance: LERCANIDIPINE
     Indication: ARRHYTHMIA
  2. ELIQUIS [Concomitant]
     Active Substance: APIXABAN
     Indication: ARRHYTHMIA
  3. EUTHYROX NF [Suspect]
     Active Substance: LEVOTHYROXINE SODIUM
     Indication: THYROID DISORDER
     Dosage: 100 (UNIT UNSPECIFIED)
  4. BISOPROLOL [Concomitant]
     Active Substance: BISOPROLOL
     Indication: ARRHYTHMIA
  5. COVERSYL                           /00790702/ [Concomitant]
     Active Substance: PERINDOPRIL
     Indication: ARRHYTHMIA

REACTIONS (3)
  - Psychological trauma [Unknown]
  - Polymyalgia rheumatica [Recovering/Resolving]
  - Fatigue [Unknown]
